FAERS Safety Report 5245084-6 (Version None)
Quarter: 2007Q1

REPORT INFORMATION
  Report Type: 
  Country: None (occurrence: None)
  Receive Date: 20070223
  Receipt Date: 20070216
  Transmission Date: 20070707
  Serious: Yes (Hospitalization)
  Sender: FDA-Public Use
  Company Number: US-AMGEN-US208144

PATIENT
  Sex: Male

DRUGS (3)
  1. ENBREL [Suspect]
     Indication: PSORIASIS
     Route: 058
     Dates: start: 20061105, end: 20061127
  2. HYDROCHLOROTHIAZIDE [Concomitant]
  3. CELEXA [Concomitant]

REACTIONS (1)
  - CELLULITIS [None]
